FAERS Safety Report 6187079-4 (Version None)
Quarter: 2009Q2

REPORT INFORMATION
  Report Type: 
  Country: None (occurrence: None)
  Receive Date: 20090512
  Receipt Date: 20090508
  Transmission Date: 20091009
  Serious: Yes (Death)
  Sender: FDA-Public Use
  Company Number: DE-RB-015218-09

PATIENT
  Age: 46 Year
  Sex: Male

DRUGS (4)
  1. SUBOXONE [Suspect]
     Route: 048
     Dates: start: 20080317, end: 20090413
  2. ABACAVIR [Concomitant]
     Indication: DRUG USE FOR UNKNOWN INDICATION
     Dosage: DOSING INFORMATION UNKNOWN
     Route: 065
  3. TRUVADA [Concomitant]
     Indication: ACUTE HIV INFECTION
     Dosage: DOSING INFORMATION UNKNOWN
     Dates: start: 20081020, end: 20090413
  4. VIRAMUNE [Concomitant]
     Indication: ACUTE HIV INFECTION
     Dosage: DOSING INFORMATION UNKNOWN
     Dates: start: 20081020, end: 20090413

REACTIONS (1)
  - MYOCARDIAL INFARCTION [None]
